FAERS Safety Report 4971493-6 (Version None)
Quarter: 2006Q2

REPORT INFORMATION
  Report Type: 
  Country: None (occurrence: None)
  Receive Date: 20060413
  Receipt Date: 20060406
  Transmission Date: 20061013
  Serious: Yes (Hospitalization)
  Sender: FDA-Public Use
  Company Number: PHRM2006FR01272

PATIENT
  Age: 91 Year
  Sex: Female

DRUGS (6)
  1. NISIS [Suspect]
     Route: 048
  2. FUROSEMIDE [Suspect]
     Route: 048
  3. BUFLOMEDIL [Suspect]
     Route: 048
  4. PREVISCAN [Suspect]
     Dosage: 20 MG/DAY
     Route: 048
  5. CORDARONE [Suspect]
     Dosage: 200 MG/DAY
     Route: 048
     Dates: start: 20051215
  6. EFFEXOR [Suspect]
     Dosage: 37.5 MG/DAY
     Route: 048

REACTIONS (4)
  - AGITATION [None]
  - BLOOD THYROID STIMULATING HORMONE INCREASED [None]
  - CONFUSIONAL STATE [None]
  - HYPOTHYROIDISM [None]
